FAERS Safety Report 16789936 (Version 1)
Quarter: 2019Q3

REPORT INFORMATION
  Report Type: Spontaneous
  Country: US (occurrence: US)
  Receive Date: 20190910
  Receipt Date: 20190910
  Transmission Date: 20191005
  Serious: No
  Sender: FDA-Public Use
  Company Number: US-CIPLA LTD.-2019US03941

PATIENT

DRUGS (1)
  1. ALENDRONATE [Suspect]
     Active Substance: ALENDRONATE SODIUM
     Indication: OSTEOPOROSIS
     Dosage: 70 MILLIGRAM, QD (EVERY SATURDAY MORNING), ONCE IN A WEEK, SINCE 5 WEEKS
     Route: 065
     Dates: start: 201904

REACTIONS (3)
  - Back pain [Unknown]
  - Pain in extremity [Unknown]
  - Gait inability [Unknown]
